FAERS Safety Report 14678133 (Version 5)
Quarter: 2018Q4

REPORT INFORMATION
  Report Type: Report from Study
  Country: None (occurrence: US)
  Receive Date: 20180326
  Receipt Date: 20181015
  Transmission Date: 20190204
  Serious: Yes (Hospitalization)
  Sender: FDA-Public Use
  Company Number: US-ABBVIE-18K-163-2286918-00

PATIENT
  Age: 74 Year
  Sex: Male

DRUGS (7)
  1. ATENOLOL. [Concomitant]
     Active Substance: ATENOLOL
     Indication: HYPERTENSION
  2. HUMIRA [Suspect]
     Active Substance: ADALIMUMAB
     Indication: CROHN^S DISEASE
     Route: 058
     Dates: start: 2015, end: 20180216
  3. HUMIRA [Suspect]
     Active Substance: ADALIMUMAB
     Indication: IRRITABLE BOWEL SYNDROME
     Route: 058
  4. MYRBETRIQ [Concomitant]
     Active Substance: MIRABEGRON
     Indication: URINARY INCONTINENCE
  5. NEVANAC [Concomitant]
     Active Substance: NEPAFENAC
     Indication: IRITIS
  6. HUMIRA [Suspect]
     Active Substance: ADALIMUMAB
     Indication: ANKYLOSING SPONDYLITIS
     Route: 058
  7. LISINOPRIL. [Concomitant]
     Active Substance: LISINOPRIL
     Indication: HYPERTENSION

REACTIONS (18)
  - White blood cell count increased [Recovered/Resolved]
  - Post procedural diarrhoea [Unknown]
  - Drug ineffective [Unknown]
  - Abdominal discomfort [Not Recovered/Not Resolved]
  - Abdominal distension [Recovered/Resolved]
  - Cholecystitis [Recovered/Resolved]
  - Abdominal distension [Not Recovered/Not Resolved]
  - Cholangitis acute [Recovered/Resolved]
  - Weight decreased [Unknown]
  - Crohn^s disease [Unknown]
  - Abdominal pain [Recovered/Resolved]
  - Cholelithiasis [Not Recovered/Not Resolved]
  - Nephrolithiasis [Unknown]
  - Cholecystitis infective [Unknown]
  - Uveitis [Unknown]
  - Ankylosing spondylitis [Unknown]
  - Inflammation [Not Recovered/Not Resolved]
  - Hernia [Not Recovered/Not Resolved]

NARRATIVE: CASE EVENT DATE: 2018
